FAERS Safety Report 9521523 (Version 2)
Quarter: 2014Q1

REPORT INFORMATION
  Report Type: Spontaneous
  Country: AE (occurrence: AE)
  Receive Date: 20130913
  Receipt Date: 20140114
  Transmission Date: 20141002
  Serious: Yes (Other)
  Sender: FDA-Public Use
  Company Number: AE-JNJFOC-20130904290

PATIENT
  Age: 53 Year
  Sex: Female
  Weight: 73 kg

DRUGS (2)
  1. REMICADE [Suspect]
     Indication: CROHN^S DISEASE
     Dosage: THIRD INFUSION (PREVIOUSLY REPORTED AS 5TH DOSE)
     Route: 042
     Dates: start: 201307, end: 2013
  2. REMICADE [Suspect]
     Indication: CROHN^S DISEASE
     Dosage: 3 VIALS = 300 MG
     Route: 042

REACTIONS (1)
  - Skin lesion [Not Recovered/Not Resolved]
